FAERS Safety Report 14069789 (Version 2)
Quarter: 2018Q1

REPORT INFORMATION
  Report Type: Spontaneous
  Country: AT (occurrence: AT)
  Receive Date: 20171010
  Receipt Date: 20180214
  Transmission Date: 20180508
  Serious: Yes (Hospitalization)
  Sender: FDA-Public Use
  Company Number: AT-JNJFOC-20171007869

PATIENT
  Age: 76 Year
  Sex: Male

DRUGS (6)
  1. BISOPROLOL [Concomitant]
     Active Substance: BISOPROLOL
     Route: 065
  2. SPIOLTO RESPIMAT [Concomitant]
     Active Substance: OLODATEROL HYDROCHLORIDE\TIOTROPIUM BROMIDE MONOHYDRATE
     Route: 065
  3. DIGIMERCK [Concomitant]
     Active Substance: DIGITOXIN
     Route: 065
  4. REMICADE [Suspect]
     Active Substance: INFLIXIMAB
     Indication: PSORIATIC ARTHROPATHY
     Route: 042
     Dates: start: 201605, end: 201703
  5. MARCOUMAR [Concomitant]
     Active Substance: PHENPROCOUMON
     Route: 065
  6. EPLERENONE. [Concomitant]
     Active Substance: EPLERENONE
     Route: 065

REACTIONS (5)
  - Urinary retention [Recovered/Resolved]
  - Off label use [Unknown]
  - Product use issue [Unknown]
  - Benign prostatic hyperplasia [Recovered/Resolved]
  - Transurethral prostatectomy [Recovered/Resolved]

NARRATIVE: CASE EVENT DATE: 201605
